FAERS Safety Report 6094208-X (Version None)
Quarter: 2009Q1

REPORT INFORMATION
  Report Type: 
  Country: None (occurrence: None)
  Receive Date: 20090226
  Receipt Date: 20090216
  Transmission Date: 20090719
  Serious: Yes (Other)
  Sender: FDA-Public Use
  Company Number: PHHY2009FR04332

PATIENT
  Sex: Female
  Weight: 40 kg

DRUGS (2)
  1. TRILEPTAL [Suspect]
     Indication: EPILEPSY
     Dosage: 9 ML IN MORNING AND 8 ML IN EVENING
     Dates: start: 20040101
  2. SABRIL [Concomitant]

REACTIONS (1)
  - EPILEPSY [None]
